FAERS Safety Report 4506915-8 (Version None)
Quarter: 2004Q4

REPORT INFORMATION
  Report Type: 
  Country: None (occurrence: None)
  Receive Date: 20041117
  Receipt Date: 20041104
  Transmission Date: 20050328
  Serious: Yes (Life-Threatening, Other)
  Sender: FDA-Public Use
  Company Number: 2004-DE-05739DE

PATIENT
  Sex: Male

DRUGS (1)
  1. AGGRENOX [Suspect]
     Indication: ISCHAEMIC CEREBRAL INFARCTION

REACTIONS (1)
  - CEREBRAL HAEMORRHAGE [None]
